FAERS Safety Report 7217493-7 (Version None)
Quarter: 2011Q1

REPORT INFORMATION
  Report Type: 
  Country: None (occurrence: None)
  Receive Date: 20110110
  Receipt Date: 20101231
  Transmission Date: 20110831
  Serious: Yes (Death)
  Sender: FDA-Public Use
  Company Number: US-PFIZER INC-2011002341

PATIENT
  Age: 53 Year
  Sex: Female

DRUGS (3)
  1. PROPRANOLOL [Suspect]
     Route: 048
  2. VENLAFAXINE HCL [Suspect]
     Route: 048
  3. QUETIAPINE [Suspect]
     Route: 048

REACTIONS (3)
  - CARDIAC ARREST [None]
  - COMPLETED SUICIDE [None]
  - RESPIRATORY ARREST [None]
